FAERS Safety Report 6912538-3 (Version None)
Quarter: 2010Q3

REPORT INFORMATION
  Report Type: 
  Country: None (occurrence: None)
  Receive Date: 20100806
  Receipt Date: 20080731
  Transmission Date: 20110219
  Serious: No
  Sender: FDA-Public Use
  Company Number: US-PFIZER INC-2008052995

PATIENT
  Sex: Female
  Weight: 65 kg

DRUGS (5)
  1. DETROL LA [Suspect]
     Indication: URINARY INCONTINENCE
  2. DILTIAZEM [Concomitant]
  3. DIGOXIN [Concomitant]
  4. ALENDRONIC ACID [Concomitant]
  5. SIMVASTATIN [Concomitant]

REACTIONS (3)
  - EYE SWELLING [None]
  - MOOD ALTERED [None]
  - SKIN DISORDER [None]
